FAERS Safety Report 20304313 (Version 1)
Quarter: 2022Q1

REPORT INFORMATION
  Report Type: Spontaneous
  Country: FR (occurrence: FR)
  Receive Date: 20220106
  Receipt Date: 20220106
  Transmission Date: 20220423
  Serious: Yes (Hospitalization)
  Sender: FDA-Public Use
  Company Number: None

PATIENT
  Age: 74 Year
  Sex: Male
  Weight: 92 kg

DRUGS (9)
  1. PRAVASTATIN [Suspect]
     Active Substance: PRAVASTATIN
     Indication: Hyperlipidaemia
     Dosage: 20 MILLIGRAM DAILY; PRAVASTATINE 0-0-20 MG , PRAVASTATINE SODIQUE
     Route: 048
     Dates: start: 2017, end: 20211214
  2. WARFARIN SODIUM [Suspect]
     Active Substance: WARFARIN SODIUM
     Indication: Cardiac valve prosthesis user
     Dosage: 5 MILLIGRAM DAILY; COUMADINE  5 MG-0-0 , SCORED TABLET
     Route: 048
     Dates: start: 2018, end: 20211209
  3. POLYETHYLENE GLYCOL 4000 [Concomitant]
     Active Substance: POLYETHYLENE GLYCOL 4000
     Dosage: 2 DOSAGE FORMS DAILY; MACROGOL 4000 SACHETS 2/D
     Route: 045
  4. FUROSEMIDE [Concomitant]
     Active Substance: FUROSEMIDE
     Dosage: FUROSEMIDE 500 MG 1 / 4-1 / 4-0 CPR , UNIT DOSE : 250 MG
     Route: 048
  5. FLUTICASONE FUROATE [Concomitant]
     Active Substance: FLUTICASONE FUROATE
     Dosage: 2 DOSAGE FORMS DAILY; AVAMYS  2-0-0 , UNIT DOSE : 27.5 MICROGRAMS / SPRAY
     Route: 045
  6. LEVOTHYROXINE SODIUM [Concomitant]
     Active Substance: LEVOTHYROXINE SODIUM
     Dosage: 50 MICROGRAM DAILY; LEVOTHYROXINE 50 UG-0-0-
     Route: 048
  7. CANDESARTAN CILEXETIL [Concomitant]
     Active Substance: CANDESARTAN CILEXETIL
     Dosage: 4 MILLIGRAM DAILY; CANDESARTAN 4 MG-0-0
     Route: 048
  8. ZOPICLONE [Concomitant]
     Active Substance: ZOPICLONE
     Dosage: 7.5 MILLIGRAM DAILY; ZOPICLONE 0-0-0-7.5 MG CPR
     Route: 048
  9. TOUJEO [Concomitant]
     Active Substance: INSULIN GLARGINE
     Dosage: 26 IU (INTERNATIONAL UNIT) DAILY; TOUJEO (INSULIN GLARGINE) 26 IU-0-0
     Route: 058

REACTIONS (1)
  - Hepatic cytolysis [Recovering/Resolving]

NARRATIVE: CASE EVENT DATE: 20211206
